FAERS Safety Report 14385929 (Version 15)
Quarter: 2019Q2

REPORT INFORMATION
  Report Type: Spontaneous
  Country: CA (occurrence: CA)
  Receive Date: 20180115
  Receipt Date: 20190630
  Transmission Date: 20190711
  Serious: Yes (Hospitalization, Other)
  Sender: FDA-Public Use
  Company Number: CA-CELLTRION INC.-2017CA008107

PATIENT

DRUGS (16)
  1. INFLECTRA [Suspect]
     Active Substance: INFLIXIMAB-DYYB
     Dosage: 700 MG, THEN EVERY 6 WEEKS
     Route: 042
     Dates: start: 20180912
  2. INFLECTRA [Suspect]
     Active Substance: INFLIXIMAB-DYYB
     Dosage: 700 MG, THEN EVERY 6 WEEKS
     Route: 042
     Dates: start: 20181106
  3. INFLECTRA [Suspect]
     Active Substance: INFLIXIMAB-DYYB
     Dosage: 730 MG, EVERY ,6 WEEKS (10MG/KG)
     Route: 042
  4. INFLECTRA [Suspect]
     Active Substance: INFLIXIMAB-DYYB
     Dosage: 700 MG, THEN EVERY 6 WEEKS
     Route: 042
     Dates: start: 20180111
  5. INFLECTRA [Suspect]
     Active Substance: INFLIXIMAB-DYYB
     Dosage: 400 MG EVERY 6 WEEKS
     Route: 042
  6. INFLECTRA [Suspect]
     Active Substance: INFLIXIMAB-DYYB
     Dosage: 10 MG/KG, UNK(EVERY 8 WEEKS)
     Route: 042
     Dates: start: 20190129
  7. PREDNISONE. [Concomitant]
     Active Substance: PREDNISONE
     Dosage: UNK
  8. IMURAN [Concomitant]
     Active Substance: AZATHIOPRINE
     Dosage: 125 MG ONCE A DAY
     Route: 048
     Dates: start: 20170405
  9. INFLECTRA [Suspect]
     Active Substance: INFLIXIMAB-DYYB
     Indication: COLITIS ULCERATIVE
     Dosage: 400 MG,  EVERY 0,2,6 WEEKS, THEN EVERY 8 WEEKS
     Route: 042
     Dates: start: 20170511
  10. PREDNISONE. [Concomitant]
     Active Substance: PREDNISONE
     Dosage: 40 MG, UNK
     Dates: start: 20170111, end: 20170315
  11. INFLECTRA [Suspect]
     Active Substance: INFLIXIMAB-DYYB
     Dosage: 10 MG/KG, UNK(EVERY 8 WEEKS)
     Route: 042
     Dates: start: 20190522
  12. INFLECTRA [Suspect]
     Active Substance: INFLIXIMAB-DYYB
     Dosage: 700 MG, 12 WEEKS AFTER LAST INFUSIO
     Route: 042
     Dates: start: 20190129
  13. INFLECTRA [Suspect]
     Active Substance: INFLIXIMAB-DYYB
     Dosage: 700 MG, 12 WEEKS AFTER LAST INFUSION
     Route: 042
     Dates: start: 20190325
  14. INFLECTRA [Suspect]
     Active Substance: INFLIXIMAB-DYYB
     Dosage: 700 MG, THEN EVERY 6 WEEKS
     Route: 042
  15. INFLECTRA [Suspect]
     Active Substance: INFLIXIMAB-DYYB
     Dosage: 700 MG, THEN EVERY 6 WEEKS
     Route: 042
     Dates: start: 20180328
  16. PREDNISONE. [Concomitant]
     Active Substance: PREDNISONE
     Dosage: 40 MG, UNK
     Dates: start: 20170405, end: 201710

REACTIONS (17)
  - Gallbladder disorder [Unknown]
  - Headache [Unknown]
  - Product use issue [Unknown]
  - Therapeutic product effect incomplete [Unknown]
  - Rectal haemorrhage [Unknown]
  - Asthenia [Unknown]
  - Nasopharyngitis [Recovered/Resolved]
  - Nasal congestion [Recovered/Resolved]
  - Pharyngitis [Recovering/Resolving]
  - Furuncle [Unknown]
  - Product use issue [Unknown]
  - Fatigue [Unknown]
  - Fatigue [Unknown]
  - Malaise [Recovering/Resolving]
  - Abscess [Unknown]
  - Balance disorder [Unknown]
  - Drug level increased [Unknown]

NARRATIVE: CASE EVENT DATE: 20171129
